FAERS Safety Report 10218227 (Version 2)
Quarter: 2014Q2

REPORT INFORMATION
  Report Type: Other
  Country: CA (occurrence: CA)
  Receive Date: 20140605
  Receipt Date: 20140605
  Transmission Date: 20141212
  Serious: Yes (Hospitalization, Other)
  Sender: FDA-Public Use
  Company Number: CA-GSKPPD-2014GSK024093

PATIENT
  Age: 54 Year
  Sex: Female

DRUGS (8)
  1. AVANDIA [Suspect]
     Indication: DIABETES MELLITUS
     Dosage: DATES OF AVANDIA USE COULD NOT BE CONFIRMED IN RECORDS REVIEWED
     Route: 048
  2. LISINOPRIL [Concomitant]
     Route: 048
  3. AVAPRO [Concomitant]
     Route: 048
  4. AMLODIPINE [Concomitant]
  5. ASPIRIN [Concomitant]
  6. METOPROLOL [Concomitant]
     Route: 048
  7. FUROSEMIDE [Concomitant]
  8. NITRO-DUR [Concomitant]

REACTIONS (4)
  - Myocardial infarction [Recovered/Resolved]
  - Cardiac failure congestive [Recovered/Resolved]
  - Acute coronary syndrome [None]
  - Cardiomegaly [None]
